FAERS Safety Report 14450528 (Version 1)
Quarter: 2018Q1

REPORT INFORMATION
  Report Type: Spontaneous
  Country: TN (occurrence: TN)
  Receive Date: 20180129
  Receipt Date: 20180129
  Transmission Date: 20180509
  Serious: Yes (Hospitalization, Other)
  Sender: FDA-Public Use
  Company Number: TN-CIPLA LTD.-2018TN02296

PATIENT

DRUGS (2)
  1. CELECOXIB. [Suspect]
     Active Substance: CELECOXIB
     Indication: ARTHRALGIA
     Dosage: 1 DF, IN TOTAL
     Route: 065
     Dates: start: 201306, end: 201306
  2. LEVETIRACETAM. [Suspect]
     Active Substance: LEVETIRACETAM
     Indication: SEIZURE
     Dosage: 500 MG, BID
     Route: 065
     Dates: start: 201307, end: 201307

REACTIONS (4)
  - Status epilepticus [Recovered/Resolved]
  - Erythema [Unknown]
  - Drug intolerance [Unknown]
  - Cardio-respiratory arrest [Recovered/Resolved]

NARRATIVE: CASE EVENT DATE: 201306
